FAERS Safety Report 8589018 (Version 2)
Quarter: 2012Q4

REPORT INFORMATION
  Report Type: 
  Country: GR (occurrence: GR)
  Receive Date: 20120531
  Receipt Date: 20120914
  Transmission Date: 20130627
  Serious: Yes (Death, Hospitalization)
  Sender: FDA-Public Use
  Company Number: GR-BAXTER-2012BAX004122

PATIENT
  Age: 57 Year
  Sex: Female
  Weight: 98 kg

DRUGS (7)
  1. HUMAN ALBUMIN [Suspect]
     Indication: HYPOALBUMINEMIA
     Route: 042
     Dates: start: 20110527, end: 20110527
  2. HUMAN ALBUMIN/BAXTER 200G/L SOLUTION FOR INFUSION [Suspect]
     Route: 042
     Dates: start: 20110608, end: 20110610
  3. HUMAN ALBUMIN [Suspect]
     Route: 042
     Dates: start: 20110629, end: 20110702
  4. HUMAN ALBUMIN [Suspect]
     Route: 042
     Dates: start: 20110730, end: 20110806
  5. MEROPENEM [Concomitant]
     Indication: RESPIRATORY INFECTION
     Route: 042
     Dates: start: 20110605, end: 20110620
  6. TEICOPLANIN [Concomitant]
     Indication: RESPIRATORY INFECTION
     Route: 042
     Dates: start: 20110604, end: 20110614
  7. OMEPRAZOLE [Concomitant]
     Indication: GASTROESOPHAGEAL REFLUX PROPHYLAXIS
     Route: 042
     Dates: start: 20110522, end: 20110607

REACTIONS (2)
  - Multi-organ failure [Fatal]
  - Dermatitis allergic [Recovered/Resolved]
